FAERS Safety Report 16827459 (Version 2)
Quarter: 2020Q1

REPORT INFORMATION
  Report Type: Spontaneous
  Country: KR (occurrence: KR)
  Receive Date: 20190919
  Receipt Date: 20200324
  Transmission Date: 20200409
  Serious: Yes (Other)
  Sender: FDA-Public Use
  Company Number: KR-PFIZER INC-2019389836

PATIENT
  Age: 62 Year
  Sex: Female

DRUGS (1)
  1. VANCOMYCIN HCL [Suspect]
     Active Substance: VANCOMYCIN HYDROCHLORIDE
     Dosage: UNK (INTRACAMERAL VANCOMYCIN INJECTION)
     Route: 031

REACTIONS (2)
  - Haemorrhagic vasculitis [Not Recovered/Not Resolved]
  - Retinal vasculitis [Recovering/Resolving]
